FAERS Safety Report 16696038 (Version 1)
Quarter: 2019Q3

REPORT INFORMATION
  Report Type: Spontaneous
  Country: US (occurrence: US)
  Receive Date: 20190813
  Receipt Date: 20190813
  Transmission Date: 20191004
  Serious: No
  Sender: FDA-Public Use
  Company Number: US-AUROBINDO-AUR-APU-2018-032830

PATIENT
  Sex: Male
  Weight: 86.2 kg

DRUGS (2)
  1. LEVOFLOXACIN TABLETS 750MG [Suspect]
     Active Substance: LEVOFLOXACIN
     Dosage: HALF A PILL
     Route: 065
     Dates: start: 20180619
  2. LEVOFLOXACIN TABLETS 750MG [Suspect]
     Active Substance: LEVOFLOXACIN
     Indication: BRONCHITIS
     Dosage: 1 DOSAGE FORM, DAILY
     Dates: start: 20180615, end: 20180615

REACTIONS (3)
  - Erythema [Not Recovered/Not Resolved]
  - Incorrect dose administered [Unknown]
  - Lip swelling [Not Recovered/Not Resolved]
